FAERS Safety Report 7222610-9 (Version None)
Quarter: 2011Q1

REPORT INFORMATION
  Report Type: 
  Country: None (occurrence: None)
  Receive Date: 20110112
  Receipt Date: 20110110
  Transmission Date: 20110831
  Serious: Yes (Death)
  Sender: FDA-Public Use
  Company Number: GR-PFIZER INC-2011005488

PATIENT
  Age: 60 Year
  Sex: Male
  Weight: 75 kg

DRUGS (4)
  1. MEROPENEM [Suspect]
     Indication: ABDOMINAL INFECTION
     Dosage: 1G, 3X/DAY
     Route: 042
     Dates: start: 20090725, end: 20090729
  2. ERTAPENEM [Suspect]
     Indication: ABDOMINAL INFECTION
     Dosage: 1G, 1X/DAY
     Route: 042
     Dates: start: 20090722, end: 20090724
  3. CLINDAMYCIN PHOSPHATE [Suspect]
     Indication: ABDOMINAL INFECTION
     Dosage: 600 MG, 3X/DAY
     Route: 042
     Dates: start: 20090723, end: 20090728
  4. AMIKACIN [Suspect]
     Indication: ABDOMINAL INFECTION
     Dosage: 1000 UNK, 1X/DAY
     Route: 042
     Dates: start: 20090722, end: 20090726

REACTIONS (1)
  - DEATH [None]
